FAERS Safety Report 4354474-5 (Version None)
Quarter: 2004Q2

REPORT INFORMATION
  Report Type: 
  Country: None (occurrence: None)
  Receive Date: 20040503
  Receipt Date: 20040423
  Transmission Date: 20050107
  Serious: Yes (Hospitalization)
  Sender: FDA-Public Use
  Company Number: 2004-02-0468

PATIENT
  Age: 44 Year
  Sex: Male

DRUGS (13)
  1. REBETOL [Suspect]
     Indication: HEPATITIS C
     Dosage: 800 MG QD ORAL
     Route: 048
     Dates: start: 20020613, end: 20030415
  2. INTRON A [Suspect]
     Indication: HEPATITIS C
     Dosage: 10 MU TIW INTRAMUSCULAR; 6 MU QWK INTRAMUSCULAR;  6 MU BIW INTRAMUSCULAR
     Route: 030
     Dates: start: 20020613, end: 20030412
  3. INTRON A [Suspect]
     Indication: HEPATITIS C
     Dosage: 10 MU TIW INTRAMUSCULAR; 6 MU QWK INTRAMUSCULAR;  6 MU BIW INTRAMUSCULAR
     Route: 030
     Dates: start: 20030419, end: 20030529
  4. INTRON A [Suspect]
     Indication: HEPATITIS C
     Dosage: 10 MU TIW INTRAMUSCULAR; 6 MU QWK INTRAMUSCULAR;  6 MU BIW INTRAMUSCULAR
     Route: 030
     Dates: start: 20030530
  5. REBAMIPIDE [Concomitant]
  6. GLYCYRON [Concomitant]
  7. NAUZELIN [Concomitant]
  8. LANSOPRAZOLE [Concomitant]
  9. NU-LOTAN (LOSARTAN POTASSIUM) [Concomitant]
  10. POLARAMINE [Concomitant]
  11. ALESION (EPINASTINE HYDROCHLORIDE) [Concomitant]
  12. TANDOSPIRONE CITRATE [Concomitant]
  13. ALPRAZOLAM [Concomitant]

REACTIONS (3)
  - ABDOMINAL PAIN [None]
  - DEPRESSIVE SYMPTOM [None]
  - PERIPHERAL EMBOLISM [None]
